FAERS Safety Report 6091925-2 (Version None)
Quarter: 2009Q1

REPORT INFORMATION
  Report Type: 
  Country: None (occurrence: None)
  Receive Date: 20090225
  Receipt Date: 20081006
  Transmission Date: 20090719
  Serious: No
  Sender: FDA-Public Use
  Company Number: A0750632A

PATIENT
  Age: 47 Year
  Sex: Female

DRUGS (9)
  1. VALTREX [Suspect]
     Dosage: 1G THREE TIMES PER DAY
     Route: 048
     Dates: start: 20081001
  2. ASACOL [Concomitant]
  3. PREDNISONE [Concomitant]
  4. NEXIUM [Concomitant]
  5. LOMOTIL [Concomitant]
  6. HYDROXYUREA [Concomitant]
  7. CLARITIN [Concomitant]
  8. CALCIUM [Concomitant]
  9. MULTI-VITAMIN [Concomitant]

REACTIONS (4)
  - ABDOMINAL PAIN [None]
  - DIARRHOEA [None]
  - MUSCLE SPASMS [None]
  - PYREXIA [None]
